FAERS Safety Report 4743962-5 (Version None)
Quarter: 2005Q3

REPORT INFORMATION
  Report Type: 
  Country: None (occurrence: None)
  Receive Date: 20050809
  Receipt Date: 20050727
  Transmission Date: 20060218
  Serious: Yes (Death, Life-Threatening, Hospitalization)
  Sender: FDA-Public Use
  Company Number: HQWYE490717NOV04

PATIENT
  Age: 82 Year
  Sex: Female

DRUGS (11)
  1. RHEUMATREX [Suspect]
     Indication: RHEUMATOID ARTHRITIS
     Dosage: 2 + 4 + 6 + 8 MG 1X PER 1 WK ORAL - SEE IMAGE
     Route: 048
     Dates: end: 20000101
  2. RHEUMATREX [Suspect]
     Indication: RHEUMATOID ARTHRITIS
     Dosage: 2 + 4 + 6 + 8 MG 1X PER 1 WK ORAL - SEE IMAGE
     Route: 048
     Dates: start: 20040218
  3. MINOCYCLINE HCL [Suspect]
     Indication: RHEUMATOID ARTHRITIS
     Dosage: 200 MG 1X PER 1 DAY ORAL
     Route: 048
     Dates: start: 20040218
  4. VOLTAREN [Concomitant]
  5. PREDNISONE [Concomitant]
  6. STARLIX [Concomitant]
  7. COTRIM [Concomitant]
  8. FAMOTIDINE [Concomitant]
  9. SIGMART (NICORANDIL) [Concomitant]
  10. PERSANTINE [Concomitant]
  11. UNSPECIFIED RESPIRATORY PRODUCT (UNSPECIFIED RESPIRATORY PRODUCT) [Concomitant]

REACTIONS (7)
  - BONE MARROW DEPRESSION [None]
  - FUNGAL INFECTION [None]
  - PLEURAL EFFUSION [None]
  - PNEUMONIA [None]
  - SEPTIC SHOCK [None]
  - STAPHYLOCOCCAL INFECTION [None]
  - STOMATITIS [None]
